FAERS Safety Report 23919150 (Version 1)
Quarter: 2024Q2

REPORT INFORMATION
  Report Type: Spontaneous
  Country: US (occurrence: US)
  Receive Date: 20240530
  Receipt Date: 20240530
  Transmission Date: 20240716
  Serious: Yes (Life-Threatening, Hospitalization, Other)
  Sender: FDA-Public Use
  Company Number: US-MLMSERVICE-20240513-PI058227-00258-1

PATIENT
  Age: 54 Year
  Sex: Female

DRUGS (5)
  1. BUPROPION HYDROCHLORIDE [Interacting]
     Active Substance: BUPROPION HYDROCHLORIDE
     Indication: Depression
  2. PAROXETINE [Interacting]
     Active Substance: PAROXETINE
     Indication: Depression
  3. METHYLENE BLUE [Interacting]
     Active Substance: METHYLENE BLUE
     Indication: Methaemoglobinaemia
  4. DAPSONE [Concomitant]
     Active Substance: DAPSONE
  5. OXYGEN [Concomitant]
     Active Substance: OXYGEN
     Indication: Diffuse large B-cell lymphoma
     Dosage: VIA HIGH-FLOW NASAL CANNULA
     Route: 045

REACTIONS (3)
  - Drug interaction [Recovered/Resolved]
  - Encephalopathy [Recovered/Resolved]
  - Serotonin syndrome [Recovered/Resolved]
